FAERS Safety Report 8910945 (Version 2)
Quarter: 2012Q4

REPORT INFORMATION
  Report Type: Spontaneous
  Country: JP (occurrence: None)
  Receive Date: 20121113
  Receipt Date: 20121204
  Transmission Date: 20130627
  Serious: Yes (Death, Hospitalization, Other)
  Sender: FDA-Public Use
  Company Number: 2012MA013123

PATIENT
  Age: 63 Year
  Sex: Male
  Weight: 54 kg

DRUGS (2)
  1. IRINOTECAN HYDROCHLORIDE [Suspect]
     Indication: PANCREATIC CANCER METASTATIC
  2. CISPLATIN [Suspect]
     Indication: PANCREATIC CANCER METASTATIC

REACTIONS (5)
  - Metastases to meninges [None]
  - Malaise [None]
  - Headache [None]
  - Irritability [None]
  - CSF pressure increased [None]
